FAERS Safety Report 7592092-6 (Version None)
Quarter: 2011Q3

REPORT INFORMATION
  Report Type: 
  Country: None (occurrence: None)
  Receive Date: 20110705
  Receipt Date: 20110705
  Transmission Date: 20111222
  Serious: No
  Sender: FDA-Public Use
  Company Number: None

PATIENT

DRUGS (1)
  1. BONIVA [Suspect]
     Indication: OSTEOPENIA
     Dates: start: 20090101, end: 20110301

REACTIONS (2)
  - ACTIVITIES OF DAILY LIVING IMPAIRED [None]
  - PAIN IN JAW [None]
